FAERS Safety Report 23941308 (Version 5)
Quarter: 2025Q1

REPORT INFORMATION
  Report Type: Spontaneous
  Country: CL (occurrence: CL)
  Receive Date: 20240605
  Receipt Date: 20250121
  Transmission Date: 20250409
  Serious: No
  Sender: PFIZER
  Company Number: CL-PFIZER INC-PV202400072624

PATIENT
  Age: 12 Year
  Sex: Male
  Weight: 40 kg

DRUGS (1)
  1. GENOTROPIN [Suspect]
     Active Substance: SOMATROPIN
     Route: 058
     Dates: start: 2024

REACTIONS (4)
  - Drug dose omission by device [Unknown]
  - Device leakage [Unknown]
  - Product communication issue [Unknown]
  - Device difficult to use [Unknown]

NARRATIVE: CASE EVENT DATE: 20240101
